FAERS Safety Report 16112577 (Version 1)
Quarter: 2019Q1

REPORT INFORMATION
  Report Type: Spontaneous
  Country: US (occurrence: US)
  Receive Date: 20190325
  Receipt Date: 20190325
  Transmission Date: 20190418
  Serious: No
  Sender: FDA-Public Use
  Company Number: US-PFIZER INC-2019119937

PATIENT
  Age: 83 Year
  Sex: Female
  Weight: 44 kg

DRUGS (1)
  1. AMLODIPINE BESILATE [Suspect]
     Active Substance: AMLODIPINE BESYLATE
     Indication: BLOOD PRESSURE ABNORMAL
     Dosage: 2.5 MG, 2X/DAY
     Route: 048

REACTIONS (8)
  - Weight abnormal [Unknown]
  - Inflammation [Unknown]
  - Blood pressure fluctuation [Unknown]
  - Abdominal pain [Unknown]
  - Dizziness [Unknown]
  - Palpitations [Unknown]
  - Multiple allergies [Unknown]
  - Gastritis [Unknown]
